FAERS Safety Report 7558857-1 (Version None)
Quarter: 2011Q2

REPORT INFORMATION
  Report Type: 
  Country: None (occurrence: None)
  Receive Date: 20110613
  Receipt Date: 20110527
  Transmission Date: 20111010
  Serious: Yes (Other)
  Sender: FDA-Public Use
  Company Number: AUR-APL-2011-02150

PATIENT
  Age: 40 Year
  Sex: Male

DRUGS (3)
  1. FINASTERIDE [Suspect]
     Indication: ALOPECIA
     Dosage: 1 MG DAILY-ORAL
     Route: 048
     Dates: start: 20040101
  2. FINASTERIDE [Suspect]
     Indication: ALOPECIA
     Dosage: DAILY -ORAL
     Route: 048
     Dates: start: 19980101, end: 20040101
  3. AVODART [Suspect]
     Indication: ALOPECIA
     Dosage: 500UG-DAILY-
     Dates: start: 20080101, end: 20090101

REACTIONS (5)
  - OVERDOSE [None]
  - DYSGEUSIA [None]
  - SKIN DISORDER [None]
  - DARK CIRCLES UNDER EYES [None]
  - INTENTIONAL DRUG MISUSE [None]
